FAERS Safety Report 9142597 (Version 3)
Quarter: 2013Q4

REPORT INFORMATION
  Report Type: Spontaneous
  Country: None (occurrence: GB)
  Receive Date: 20130306
  Receipt Date: 20131014
  Transmission Date: 20140711
  Serious: Yes (Life-Threatening, Hospitalization)
  Sender: FDA-Public Use
  Company Number: GB-BANPHARM-20130892

PATIENT
  Age: 55 Year
  Sex: Male
  Weight: 110 kg

DRUGS (2)
  1. IBUPROFEN UNKNOWN PRODUCT [Suspect]
     Indication: PAIN
     Route: 048
     Dates: start: 2012, end: 20121231
  2. LIPITOR [Concomitant]

REACTIONS (3)
  - Anaphylactic reaction [Recovered/Resolved]
  - Ventricular tachycardia [Recovered/Resolved]
  - Renal failure [Unknown]
